FAERS Safety Report 10331065 (Version 2)
Quarter: 2014Q1

REPORT INFORMATION
  Report Type: Spontaneous
  Country: US (occurrence: None)
  Receive Date: 20120817
  Receipt Date: 20130815
  Transmission Date: 20141002
  Serious: Yes (Life-Threatening, Hospitalization, Other)
  Sender: FDA-Public Use
  Company Number: ADR-2012-00790

PATIENT
  Age: 9 Year
  Sex: Male

DRUGS (2)
  1. LIORESAL INTRATHECAL(BACLOFEN INJECTION) 2000 MCG/ML [Suspect]
     Indication: MUSCLE SPASTICITY
     Dosage: SEE B5
  2. LIORESAL INTRATHECAL(BACLOFEN INJECTION) 2000 MCG/ML [Suspect]
     Indication: CEREBRAL PALSY
     Dosage: SEE B5

REACTIONS (21)
  - Muscle rigidity [None]
  - Pyrexia [None]
  - Drug withdrawal syndrome [None]
  - Pain [None]
  - Hypertonia [None]
  - Insomnia [None]
  - Anxiety [None]
  - Muscle spasticity [None]
  - Pruritus [None]
  - Dyskinesia [None]
  - Irritability [None]
  - Sedation [None]
  - Personality change [None]
  - Myoclonus [None]
  - Arthralgia [None]
  - Hallucination [None]
  - Restlessness [None]
  - Mental status changes [None]
  - Muscle tightness [None]
  - Formication [None]
  - Discomfort [None]
